FAERS Safety Report 16275179 (Version 1)
Quarter: 2019Q2

REPORT INFORMATION
  Report Type: Spontaneous
  Country: US (occurrence: US)
  Receive Date: 20190503
  Receipt Date: 20190503
  Transmission Date: 20190711
  Serious: Yes (Hospitalization)
  Sender: FDA-Public Use
  Company Number: None

PATIENT
  Sex: Male

DRUGS (15)
  1. ATORVASTATIN [Concomitant]
     Active Substance: ATORVASTATIN
  2. NICOTINE. [Concomitant]
     Active Substance: NICOTINE
  3. PREDNISONE. [Concomitant]
     Active Substance: PREDNISONE
  4. CALCITRIOL. [Concomitant]
     Active Substance: CALCITRIOL
  5. XARELTO [Concomitant]
     Active Substance: RIVAROXABAN
  6. MYCOPHENOLATE [Concomitant]
     Active Substance: MYCOPHENOLIC ACID
  7. FUROSEMIDE. [Concomitant]
     Active Substance: FUROSEMIDE
  8. MAG OXIDE [Concomitant]
     Active Substance: MAGNESIUM OXIDE
  9. MINOXIDIL. [Concomitant]
     Active Substance: MINOXIDIL
  10. CLONIDINE. [Concomitant]
     Active Substance: CLONIDINE
  11. AMLODINPINE [Concomitant]
  12. CARVEDILOL. [Concomitant]
     Active Substance: CARVEDILOL
  13. RANITIDINE. [Concomitant]
     Active Substance: RANITIDINE
  14. CYCLOSPORINE. [Suspect]
     Active Substance: CYCLOSPORINE
     Indication: TRANSPLANT
     Route: 048
     Dates: start: 20181024
  15. HYDROCO/APAP [Concomitant]
     Active Substance: ACETAMINOPHEN\HYDROCODONE

REACTIONS (1)
  - Lung infection [None]
